FAERS Safety Report 12110546 (Version 1)
Quarter: 2016Q1

REPORT INFORMATION
  Report Type: Spontaneous
  Country: US (occurrence: US)
  Receive Date: 20160224
  Receipt Date: 20160224
  Transmission Date: 20160526
  Serious: No
  Sender: FDA-Public Use
  Company Number: US-JAZZ-2015-US-000504

PATIENT
  Age: 37 Year
  Sex: Female

DRUGS (4)
  1. PRIALT [Suspect]
     Active Substance: ZICONOTIDE ACETATE
     Indication: PAIN
     Dosage: UNK ?G, QH
     Route: 037
     Dates: start: 200912, end: 201009
  2. PRIALT [Suspect]
     Active Substance: ZICONOTIDE ACETATE
     Dosage: UNK, ?G, QH
     Route: 037
     Dates: start: 201009
  3. PRIALT [Suspect]
     Active Substance: ZICONOTIDE ACETATE
     Dosage: 0.2 ?G, SINGLE BOLUS
     Route: 037
  4. PRIALT [Suspect]
     Active Substance: ZICONOTIDE ACETATE
     Dosage: 0.20 ?G, QH
     Route: 037

REACTIONS (4)
  - Hallucination, auditory [Recovered/Resolved]
  - Limb injury [Recovered/Resolved]
  - Device issue [Recovered/Resolved]
  - Fall [Recovered/Resolved]

NARRATIVE: CASE EVENT DATE: 201009
